FAERS Safety Report 4682180-6 (Version None)
Quarter: 2005Q2

REPORT INFORMATION
  Report Type: 
  Country: None (occurrence: None)
  Receive Date: 20050602
  Receipt Date: 20050531
  Transmission Date: 20051028
  Serious: Yes (Hospitalization)
  Sender: FDA-Public Use
  Company Number: THQ2005A00479

PATIENT
  Age: 72 Year

DRUGS (1)
  1. LEUPROLIDE ACETATE [Suspect]
     Dosage: 22.5 MG (22.5 MG, 1 IN 3 M)
     Route: 030
     Dates: start: 20030212, end: 20040224

REACTIONS (2)
  - CARDIOVASCULAR DISORDER [None]
  - NERVOUS SYSTEM DISORDER [None]
